FAERS Safety Report 25860327 (Version 2)
Quarter: 2025Q4

REPORT INFORMATION
  Report Type: Spontaneous
  Country: EU (occurrence: EU)
  Receive Date: 20250929
  Receipt Date: 20251007
  Transmission Date: 20260118
  Serious: Yes (Other)
  Sender: PFIZER
  Company Number: EU-MLMSERVICE-20250918-PI649474-00054-1

PATIENT
  Age: 67 Year
  Sex: Female

DRUGS (13)
  1. PALBOCICLIB [Suspect]
     Active Substance: PALBOCICLIB
     Indication: Breast cancer female
     Dosage: UNK
     Dates: start: 202405
  2. PALBOCICLIB [Suspect]
     Active Substance: PALBOCICLIB
     Indication: Breast cancer metastatic
  3. PALBOCICLIB [Suspect]
     Active Substance: PALBOCICLIB
     Indication: Metastases to bone
  4. PALBOCICLIB [Suspect]
     Active Substance: PALBOCICLIB
     Indication: Metastases to liver
  5. ANASTROZOLE [Suspect]
     Active Substance: ANASTROZOLE
     Indication: Hormone therapy
     Dosage: UNK
  6. LETROZOLE [Suspect]
     Active Substance: LETROZOLE
     Indication: Breast cancer female
     Dosage: UNK
     Dates: start: 202405
  7. LETROZOLE [Suspect]
     Active Substance: LETROZOLE
     Indication: Breast cancer metastatic
  8. LETROZOLE [Suspect]
     Active Substance: LETROZOLE
     Indication: Metastases to bone
  9. LETROZOLE [Suspect]
     Active Substance: LETROZOLE
     Indication: Metastases to liver
  10. LANSOPRAZOLE [Suspect]
     Active Substance: LANSOPRAZOLE
     Indication: Gastrooesophageal reflux disease
     Dosage: UNK
     Dates: start: 202405
  11. LANSOPRAZOLE [Suspect]
     Active Substance: LANSOPRAZOLE
     Indication: Dyspepsia
  12. PANTOPRAZOLE [Suspect]
     Active Substance: PANTOPRAZOLE
     Indication: Gastrooesophageal reflux disease
     Dosage: UNK
     Dates: start: 202405
  13. PANTOPRAZOLE [Suspect]
     Active Substance: PANTOPRAZOLE
     Indication: Dyspepsia

REACTIONS (1)
  - Hypophosphataemia [Unknown]

NARRATIVE: CASE EVENT DATE: 20240101
